FAERS Safety Report 9754815 (Version 1)
Quarter: 2013Q4

REPORT INFORMATION
  Report Type: Spontaneous
  Country: US (occurrence: US)
  Receive Date: 20131213
  Receipt Date: 20131213
  Transmission Date: 20140711
  Serious: No
  Sender: FDA-Public Use
  Company Number: US-GLAXOSMITHKLINE-A1006849A

PATIENT
  Age: 53 Year
  Sex: Male

DRUGS (3)
  1. NICODERM CQ CLEAR 7MG [Suspect]
     Indication: EX-TOBACCO USER
     Dates: end: 20130102
  2. NICODERM CQ CLEAR 21MG [Suspect]
     Indication: EX-TOBACCO USER
     Dates: start: 201211, end: 20130102
  3. NICODERM CQ CLEAR 14MG [Suspect]
     Indication: EX-TOBACCO USER
     Dates: end: 20130102

REACTIONS (3)
  - Malaise [Not Recovered/Not Resolved]
  - Nausea [Not Recovered/Not Resolved]
  - Hyperhidrosis [Not Recovered/Not Resolved]
